FAERS Safety Report 9193584 (Version 1)
Quarter: 2013Q1

REPORT INFORMATION
  Report Type: Spontaneous
  Country: US (occurrence: US)
  Receive Date: 20130327
  Receipt Date: 20130327
  Transmission Date: 20140127
  Serious: Yes (Other)
  Sender: FDA-Public Use
  Company Number: US-JNJFOC-20130314354

PATIENT
  Sex: Female

DRUGS (3)
  1. LISTERINE MOUTHWASH [Suspect]
     Indication: DENTAL DISORDER PROPHYLAXIS
     Route: 048
  2. THYROID THERAPY [Concomitant]
     Indication: THYROID DISORDER
     Dosage: UNKNOWN DOSAGE FOR MANY YEARS
     Route: 065
  3. CHOLESTEROL MEDICINE [Concomitant]
     Indication: BLOOD CHOLESTEROL ABNORMAL
     Dosage: UNKNOWN DOSAGE FOR MANY YEARS
     Route: 065

REACTIONS (2)
  - Infection [Recovering/Resolving]
  - Gingival erythema [Not Recovered/Not Resolved]
